FAERS Safety Report 24296473 (Version 1)
Quarter: 2024Q3

REPORT INFORMATION
  Report Type: Spontaneous
  Country: DE (occurrence: DE)
  Receive Date: 20240909
  Receipt Date: 20240909
  Transmission Date: 20241016
  Serious: Yes (Other)
  Sender: SANDOZ
  Company Number: DE-BAXTER-2021BAX000904

PATIENT
  Age: 59 Year
  Sex: Female

DRUGS (15)
  1. CYTARABINE [Suspect]
     Active Substance: CYTARABINE
     Indication: Central nervous system lymphoma
     Dosage: CYCLE C, DAY 1 AND 2, OVER 3 HOURS PER INFUSION
     Route: 042
  2. DECADRON (DEXAMETHASONE SODIUM PHOSPHATE) [Suspect]
     Active Substance: DEXAMETHASONE SODIUM PHOSPHATE
     Indication: Central nervous system lymphoma
     Dosage: BAS CYCLE A, DAY 1 AND 2
     Route: 048
  3. DECADRON (DEXAMETHASONE SODIUM PHOSPHATE) [Suspect]
     Active Substance: DEXAMETHASONE SODIUM PHOSPHATE
     Dosage: BAS CYCLE B, DAY 1 AND 2
     Route: 048
  4. DECADRON (DEXAMETHASONE SODIUM PHOSPHATE) [Suspect]
     Active Substance: DEXAMETHASONE SODIUM PHOSPHATE
     Dosage: CYCLE C, DAY 1 AND 2
     Route: 048
  5. CYCLOPHOSPHAMIDE [Suspect]
     Active Substance: CYCLOPHOSPHAMIDE
     Indication: Central nervous system lymphoma
     Dosage: CYCLE B, DAY 2 LYOPHILISAT
     Route: 042
  6. IFOSFAMIDE [Suspect]
     Active Substance: IFOSFAMIDE
     Indication: Central nervous system lymphoma
     Dosage: CYCLE A, DAY 2
     Route: 042
  7. METHOTREXATE [Suspect]
     Active Substance: METHOTREXATE
     Indication: Central nervous system lymphoma
     Dosage: CYCLE A, DAY 1 AND 2
     Route: 065
  8. METHOTREXATE [Suspect]
     Active Substance: METHOTREXATE
     Dosage: CYCLE B, DAY 1, 2
     Route: 065
  9. METHOTREXATE [Suspect]
     Active Substance: METHOTREXATE
     Dosage: CYCLE A, DAY 1
     Route: 042
  10. METHOTREXATE [Suspect]
     Active Substance: METHOTREXATE
     Dosage: CYCLE B, DAY 1, 0.5 G/M2 BSA OVER 30 MIN AND 4.5 G/M2 BSA OVER 23.5 HOURS PER INFUSION
     Route: 065
  11. PREDNISOLONE [Suspect]
     Active Substance: PREDNISOLONE
     Indication: Central nervous system lymphoma
     Dosage: CYCLE A, DAY 1 AND 2
     Route: 065
  12. PREDNISOLONE [Suspect]
     Active Substance: PREDNISOLONE
     Dosage: CYCLE B, DAY 1 AND 2
     Route: 065
  13. VINCRISTINE [Suspect]
     Active Substance: VINCRISTINE
     Indication: Central nervous system lymphoma
     Dosage: CYCLE A, DAY 1
     Route: 042
  14. VINCRISTINE [Suspect]
     Active Substance: VINCRISTINE
     Dosage: CYCLE B, DAY 1
     Route: 042
  15. VINDESINE [Suspect]
     Active Substance: VINDESINE
     Indication: Central nervous system lymphoma
     Dosage: CYCLE C, DAY 1
     Route: 042

REACTIONS (4)
  - Duodenal ulcer perforation [Unknown]
  - Alopecia areata [Unknown]
  - Thrombocytopenia [Unknown]
  - Leukopenia [Unknown]
